FAERS Safety Report 4332651-7 (Version None)
Quarter: 2004Q1

REPORT INFORMATION
  Report Type: 
  Country: None (occurrence: None)
  Receive Date: 20040330
  Receipt Date: 20040317
  Transmission Date: 20041129
  Serious: Yes (Death, Hospitalization)
  Sender: FDA-Public Use
  Company Number: STA-AE-04-MTX-066

PATIENT
  Age: 76 Year
  Sex: Female

DRUGS (8)
  1. RHEUMATREX [Suspect]
     Indication: RHEUMATOID ARTHRITIS
     Dosage: 6 MG 1X PER 1 WK, ORAL
     Route: 048
     Dates: start: 20030401
  2. PREDNISOLONE [Concomitant]
  3. SOLETON (ZALTOPROFEN) [Concomitant]
  4. LOXONIN (LOXOPROFEN SODIUM) [Concomitant]
  5. MOVER (ACTARIT) [Concomitant]
  6. RIMATIL (BUCILLAMINE) [Concomitant]
  7. LIMETHASONE (DEXAMETHASONE PALMITATE/GLYCEROL/LECITHIN/SOYA OIL) [Concomitant]
  8. AZULFISINE (SULFASALAZINE) [Concomitant]

REACTIONS (12)
  - ARTHRALGIA [None]
  - BONE MARROW DEPRESSION [None]
  - CANDIDIASIS [None]
  - DRUG INEFFECTIVE [None]
  - OEDEMA PERIPHERAL [None]
  - PAIN [None]
  - PNEUMONIA [None]
  - PYREXIA [None]
  - RESPIRATORY FAILURE [None]
  - SKIN INFLAMMATION [None]
  - SPUTUM CULTURE POSITIVE [None]
  - STAPHYLOCOCCAL INFECTION [None]
